FAERS Safety Report 5034765-5 (Version None)
Quarter: 2006Q2

REPORT INFORMATION
  Report Type: 
  Country: None (occurrence: None)
  Receive Date: 20060428
  Receipt Date: 20050716
  Transmission Date: 20061013
  Serious: Yes (Other)
  Sender: FDA-Public Use
  Company Number: 200511563BBE

PATIENT
  Age: 75 Year
  Sex: Male

DRUGS (11)
  1. GAMIMUNE N 10% [Suspect]
     Indication: DEMYELINATING POLYNEUROPATHY
     Dosage: 34 G, PRN, INTRAVENOUS
     Route: 042
     Dates: start: 19940101
  2. ZIAC [Concomitant]
  3. ZOCOR [Concomitant]
  4. PRILOSEC [Concomitant]
  5. ALLEGRA [Concomitant]
  6. ATENOLOL [Concomitant]
  7. COUMADIN [Concomitant]
  8. SAW PALMETTO [Concomitant]
  9. VIAGRA [Concomitant]
  10. VICODIN [Concomitant]
  11. XANAX [Concomitant]

REACTIONS (1)
  - ANAPHYLACTOID REACTION [None]
